FAERS Safety Report 25998627 (Version 1)
Quarter: 2025Q4

REPORT INFORMATION
  Report Type: Other
  Country: US (occurrence: US)
  Receive Date: 20251105
  Receipt Date: 20251105
  Transmission Date: 20260118
  Serious: No
  Sender: GLENMARK
  Company Number: US-GLENMARK PHARMACEUTICALS-2024GMK095243

PATIENT

DRUGS (2)
  1. ESTRADIOL [Suspect]
     Active Substance: ESTRADIOL
     Indication: Genitourinary syndrome of menopause
     Dosage: 1 DOSAGE FORM TWICE WEEKLY
     Route: 067
     Dates: start: 202409, end: 202409
  2. CLOBETASOL [Concomitant]
     Active Substance: CLOBETASOL
     Indication: Lichen sclerosus
     Dosage: UNK, APPLY SPARINGLY TWICE WEEKLY
     Route: 065
     Dates: start: 202102

REACTIONS (7)
  - Symptom recurrence [Unknown]
  - Feeling abnormal [Unknown]
  - Vulvovaginal pruritus [Not Recovered/Not Resolved]
  - Vulvovaginal discomfort [Not Recovered/Not Resolved]
  - Product use in unapproved indication [Unknown]
  - Product substitution issue [Unknown]
  - Therapeutic response changed [Unknown]
